FAERS Safety Report 6693753-3 (Version None)
Quarter: 2010Q2

REPORT INFORMATION
  Report Type: 
  Country: None (occurrence: None)
  Receive Date: 20100423
  Receipt Date: 20090928
  Transmission Date: 20101027
  Serious: No
  Sender: FDA-Public Use
  Company Number: A0809328A

PATIENT
  Age: 60 Year
  Sex: Male

DRUGS (3)
  1. DEXEDRINE [Suspect]
     Indication: FATIGUE
     Dosage: 45MG PER DAY
     Route: 048
  2. LOTREL [Concomitant]
  3. OXYCODONE HCL [Concomitant]

REACTIONS (2)
  - THERAPEUTIC RESPONSE DELAYED [None]
  - THERAPEUTIC RESPONSE UNEXPECTED [None]
